FAERS Safety Report 7214572-5 (Version None)
Quarter: 2011Q1

REPORT INFORMATION
  Report Type: 
  Country: None (occurrence: None)
  Receive Date: 20110107
  Receipt Date: 20110104
  Transmission Date: 20110831
  Serious: Yes (Death)
  Sender: FDA-Public Use
  Company Number: DE-GENZYME-CAMP-1001188

PATIENT

DRUGS (18)
  1. CAMPATH [Suspect]
     Indication: PERIPHERAL T-CELL LYMPHOMA UNSPECIFIED
     Dosage: 3 MG, QD ON DAY 1 OF CYCLE 1
     Route: 065
  2. CAMPATH [Suspect]
     Dosage: 30 MG, QD ON DAYS 3 AND 4 OF CYCLE 1
     Route: 065
  3. CAMPATH [Suspect]
     Dosage: 10 MG, QD ON DAY 1 OF CYCLE 2
     Route: 065
  4. FLUDARABINE PHOSPHATE [Suspect]
     Dosage: 25 MG/M2, QD ON DAYS 1, 2 AND 3 OF CYCLE 2
     Route: 065
  5. DOXORUBICIN HCL [Suspect]
     Indication: PERIPHERAL T-CELL LYMPHOMA UNSPECIFIED
     Dosage: 50 MG/M2, QD ON DAY 4 OF CYCLE 1
     Route: 065
  6. PREDNISONE [Concomitant]
     Indication: PREMEDICATION
     Dosage: 100 MG, QD ON DAY 1 OF EACH CYCLE
     Route: 042
  7. TRIMETHOPRIM + SULFAMETHOXAZOLE [Concomitant]
     Indication: INFECTION PROPHYLAXIS
     Dosage: 960 MG, 3X/W
     Route: 065
  8. CYCLOPHOSPHAMIDE [Suspect]
     Indication: PERIPHERAL T-CELL LYMPHOMA UNSPECIFIED
     Dosage: 600 MG/M2, QD ON DAY 3 OF CYCLE 1
     Route: 065
  9. CLEMASTINE FUMARATE [Concomitant]
     Indication: PREMEDICATION
     Dosage: 2 MG, QD ON DAY 1 OF EACH CYCLE
     Route: 042
  10. SEROTONIN ANTAGONISTS [Concomitant]
     Indication: PREMEDICATION
     Dosage: UNK ON DAYS 2 AND 3 OF EACH CYCLE
     Route: 065
  11. FAMCICLOVIR [Concomitant]
     Indication: INFECTION PROPHYLAXIS
     Dosage: 250 MG, BID
  12. CAMPATH [Suspect]
     Dosage: 30 MG, QD ON DAY 2 AND 3 OF CYCLE 2
     Route: 065
  13. FLUDARABINE PHOSPHATE [Suspect]
     Indication: PERIPHERAL T-CELL LYMPHOMA UNSPECIFIED
     Dosage: 25 MG/M2, QD ON DAYS 2, 3 AND 4 OF CYCLE 1
     Route: 065
  14. CYCLOPHOSPHAMIDE [Suspect]
     Dosage: 600 MG/M2, QD ON DAY 2 OF CYCLE 2
     Route: 065
  15. ACETAMINOPHEN [Concomitant]
     Indication: PREMEDICATION
     Dosage: 1 G, QD ON DAY 1 OF EACH CYCLE
     Route: 048
  16. DOXORUBICIN HCL [Suspect]
     Dosage: 50 MG/M2, QD ON DAY 3 OF CYCLE 2
     Route: 065
  17. PREDNISONE [Concomitant]
     Dosage: 50 MG, QD ON DAY 2 AND 3 OF EACH CYCLE
     Route: 042
  18. CAMPATH [Suspect]
     Dosage: 10 MG, QD ON DAY 2 OF CYCLE 1
     Route: 065

REACTIONS (1)
  - CARDIAC FAILURE [None]
